FAERS Safety Report 18189219 (Version 1)
Quarter: 2020Q3

REPORT INFORMATION
  Report Type: Spontaneous
  Country: US (occurrence: US)
  Receive Date: 20200824
  Receipt Date: 20200824
  Transmission Date: 20201103
  Serious: No
  Sender: FDA-Public Use
  Company Number: US-PERRIGO-20US000413

PATIENT

DRUGS (1)
  1. NICOTINE POLACRILEX [Suspect]
     Active Substance: NICOTINE
     Indication: PRODUCT USED FOR UNKNOWN INDICATION
     Dosage: 4 MG, TWICE
     Route: 002
     Dates: start: 202001, end: 202001

REACTIONS (4)
  - Nausea [Unknown]
  - Oral discomfort [Unknown]
  - Throat tightness [Unknown]
  - Throat irritation [Unknown]

NARRATIVE: CASE EVENT DATE: 202001
